FAERS Safety Report 9759698 (Version 1)
Quarter: 2013Q4

REPORT INFORMATION
  Report Type: Spontaneous
  Country: US (occurrence: US)
  Receive Date: 20131216
  Receipt Date: 20131216
  Transmission Date: 20140711
  Serious: No
  Sender: FDA-Public Use
  Company Number: US-GILEAD-2010-0029012

PATIENT
  Age: 62 Year
  Sex: Female
  Weight: 68.04 kg

DRUGS (14)
  1. LETAIRIS [Suspect]
     Indication: PULMONARY ARTERIAL HYPERTENSION
     Route: 048
     Dates: start: 20080623
  2. VITAMIN B12 [Concomitant]
  3. TYLENOL-CODEINE [Concomitant]
  4. DIOVAN HCT [Concomitant]
  5. LEVOTHYROXINE [Concomitant]
  6. ALPRAZOLAM [Concomitant]
  7. FERROUS SULFATE [Concomitant]
  8. FOLIC ACID [Concomitant]
  9. REVATIO [Concomitant]
  10. FUROSEMIDE [Concomitant]
  11. PROTONIX [Concomitant]
  12. HYDROCHLOROTHIAZIDE [Concomitant]
  13. SPIRONOLACTONE [Concomitant]
  14. DIGOXIN [Concomitant]

REACTIONS (1)
  - Nasal congestion [Unknown]
